FAERS Safety Report 15951632 (Version 1)
Quarter: 2019Q1

REPORT INFORMATION
  Report Type: Spontaneous
  Country: US (occurrence: US)
  Receive Date: 20190211
  Receipt Date: 20190211
  Transmission Date: 20190417
  Serious: Yes (Death)
  Sender: FDA-Public Use
  Company Number: US-BAYER-2019-027958

PATIENT
  Age: 62 Year
  Sex: Male

DRUGS (1)
  1. BAYER LOW DOSE [Suspect]
     Active Substance: ASPIRIN
     Indication: ARTERIOSCLEROSIS CORONARY ARTERY
     Dosage: 81 MG TAKEN WHEN CHEST PAINS STARTED THAT MORNING
     Dates: start: 1996

REACTIONS (1)
  - Myocardial infarction [Fatal]
